FAERS Safety Report 10329611 (Version 2)
Quarter: 2015Q2

REPORT INFORMATION
  Report Type: Spontaneous
  Country: US (occurrence: US)
  Receive Date: 20140721
  Receipt Date: 20150511
  Transmission Date: 20150821
  Serious: Yes (Other)
  Sender: FDA-Public Use
  Company Number: US-PFIZER INC-2014201699

PATIENT
  Age: 81 Year
  Sex: Male
  Weight: 83.9 kg

DRUGS (1)
  1. TIKOSYN [Suspect]
     Active Substance: DOFETILIDE
     Indication: CARDIAC FIBRILLATION
     Dosage: 125 MG, 2X/DAY

REACTIONS (7)
  - Hip fracture [Unknown]
  - Back disorder [Unknown]
  - Colon cancer [Unknown]
  - Drug ineffective [Unknown]
  - Prostate cancer [Unknown]
  - Diabetes mellitus [Unknown]
  - Eye disorder [Unknown]
